FAERS Safety Report 7740155-4 (Version None)
Quarter: 2011Q3

REPORT INFORMATION
  Report Type: 
  Country: None (occurrence: None)
  Receive Date: 20110909
  Receipt Date: 20110906
  Transmission Date: 20111222
  Serious: Yes (Other)
  Sender: FDA-Public Use
  Company Number: DE-JNJFOC-20110902188

PATIENT
  Sex: Female

DRUGS (1)
  1. PALEXIA RETARD [Suspect]
     Indication: PRODUCT USED FOR UNKNOWN INDICATION
     Dosage: 2X 50 MG PER DAY
     Route: 048

REACTIONS (2)
  - TACHYARRHYTHMIA [None]
  - TACHYCARDIA [None]
